FAERS Safety Report 14831406 (Version 2)
Quarter: 2018Q4

REPORT INFORMATION
  Report Type: Spontaneous
  Country: US (occurrence: US)
  Receive Date: 20180501
  Receipt Date: 20181204
  Transmission Date: 20190204
  Serious: Yes (Hospitalization, Other)
  Sender: FDA-Public Use
  Company Number: US-ASTRAZENECA-2018SE58122

PATIENT
  Age: 24301 Day
  Sex: Female

DRUGS (42)
  1. NEXIUM [Suspect]
     Active Substance: ESOMEPRAZOLE MAGNESIUM
     Indication: GASTROOESOPHAGEAL REFLUX DISEASE
     Dosage: 40.0MG UNKNOWN
     Route: 048
     Dates: start: 201401, end: 201412
  2. METOPROLOL. [Concomitant]
     Active Substance: METOPROLOL
     Indication: HYPERTENSION
     Route: 048
     Dates: start: 20110629, end: 201404
  3. RANITIDINE. [Concomitant]
     Active Substance: RANITIDINE
     Dosage: 300.0MG UNKNOWN
     Dates: start: 20100916
  4. DALTEPARIN SODIUM [Concomitant]
     Active Substance: DALTEPARIN SODIUM
     Dosage: 5000 UNITES EVERY 24 HOURS
     Route: 058
  5. SULFAMETHOXAZOLE [Concomitant]
     Active Substance: SULFAMETHOXAZOLE
  6. NEXIUM 24HR [Suspect]
     Active Substance: ESOMEPRAZOLE MAGNESIUM
     Indication: GASTROOESOPHAGEAL REFLUX DISEASE
     Dosage: 20.0MG UNKNOWN
     Route: 048
     Dates: start: 200801, end: 201212
  7. SERTRALINE [Concomitant]
     Active Substance: SERTRALINE HYDROCHLORIDE
     Indication: DEPRESSION
     Dosage: 100.0MG UNKNOWN
     Dates: start: 201107, end: 201309
  8. SIMVASTATIN. [Concomitant]
     Active Substance: SIMVASTATIN
     Indication: BLOOD CHOLESTEROL INCREASED
     Route: 048
     Dates: start: 201107, end: 201202
  9. NAPHCON [Concomitant]
     Active Substance: NAPHAZOLINE HYDROCHLORIDE
     Dosage: 0.025-0.3 % OPHTHALMIC SOLUTION
  10. OXYCODONE-ACETAMINOPHEN [Concomitant]
     Active Substance: ACETAMINOPHEN\OXYCODONE HYDROCHLORIDE
  11. NEXIUM [Suspect]
     Active Substance: ESOMEPRAZOLE MAGNESIUM
     Indication: GASTROOESOPHAGEAL REFLUX DISEASE
     Dosage: 40.0MG UNKNOWN
     Route: 048
     Dates: start: 20130102
  12. LISINOPRIL. [Concomitant]
     Active Substance: LISINOPRIL
     Indication: HYPERTENSION
     Route: 048
     Dates: start: 201110, end: 201710
  13. RANITIDINE. [Concomitant]
     Active Substance: RANITIDINE
     Dosage: UNKNOWN
     Dates: start: 201204, end: 201209
  14. ACETAMINOPHEN. [Concomitant]
     Active Substance: ACETAMINOPHEN
     Indication: HEADACHE
     Dosage: 650.0MG EVERY 4 - 6 HOURS
     Route: 048
     Dates: start: 20111211
  15. HEPARIN [Concomitant]
     Active Substance: HEPARIN SODIUM
     Dosage: 5000 UNIT(S)
  16. NEXIUM [Suspect]
     Active Substance: ESOMEPRAZOLE MAGNESIUM
     Indication: GASTROOESOPHAGEAL REFLUX DISEASE
     Dosage: 40.0MG UNKNOWN
     Route: 048
     Dates: start: 201301, end: 201310
  17. NEXIUM [Suspect]
     Active Substance: ESOMEPRAZOLE MAGNESIUM
     Indication: GASTROOESOPHAGEAL REFLUX DISEASE
     Dosage: GENERIC40.0MG UNKNOWN
     Route: 048
  18. OMEPRAZOLE. [Suspect]
     Active Substance: OMEPRAZOLE
     Indication: GASTROOESOPHAGEAL REFLUX DISEASE
     Route: 065
     Dates: start: 201210, end: 201211
  19. ATORVASTATIN [Concomitant]
     Active Substance: ATORVASTATIN
     Indication: BLOOD CHOLESTEROL
     Dates: start: 201705, end: 201710
  20. CALCIUM CARBONATE. [Concomitant]
     Active Substance: CALCIUM CARBONATE
  21. HYDRALAZINE [Concomitant]
     Active Substance: HYDRALAZINE HYDROCHLORIDE
     Indication: BLOOD PRESSURE SYSTOLIC
     Dosage: 10.0MG EVERY 4 - 6 HOURS
     Route: 042
  22. LORAZEPAM. [Concomitant]
     Active Substance: LORAZEPAM
     Indication: ANXIETY
     Dosage: 1-2 MG EVERY 4 - 6 HOURS
     Route: 042
  23. WELLBUTRIN [Concomitant]
     Active Substance: BUPROPION HYDROCHLORIDE
     Dosage: 100 TWICE A DAY
  24. OMEPRAZOLE. [Suspect]
     Active Substance: OMEPRAZOLE
     Indication: GASTROOESOPHAGEAL REFLUX DISEASE
     Route: 048
  25. OMEPRAZOLE. [Suspect]
     Active Substance: OMEPRAZOLE
     Indication: GASTROOESOPHAGEAL REFLUX DISEASE
     Dosage: 40.0MG UNKNOWN
     Route: 065
     Dates: start: 20121019
  26. PRAVASTATIN. [Concomitant]
     Active Substance: PRAVASTATIN
     Indication: BLOOD CHOLESTEROL INCREASED
     Dosage: 10.0MG UNKNOWN
     Dates: start: 201202, end: 201601
  27. PANTOPRAZOLE [Concomitant]
     Active Substance: PANTOPRAZOLE
     Route: 048
  28. MELOXICAM. [Concomitant]
     Active Substance: MELOXICAM
  29. TOVIAZ [Concomitant]
     Active Substance: FESOTERODINE FUMARATE
     Indication: HYPERTONIC BLADDER
     Dates: start: 201106, end: 201601
  30. HYDROCODONE [Concomitant]
     Active Substance: HYDROCODONE
     Indication: PAIN
     Dosage: (5-500MG) EVERY 4 HOURS
     Route: 048
     Dates: start: 20111112
  31. TRAMADOL. [Concomitant]
     Active Substance: TRAMADOL
     Dosage: 50.0MG UNKNOWN
     Dates: start: 20110629, end: 201605
  32. HYDROCHLOROTHIAZIDE. [Concomitant]
     Active Substance: HYDROCHLOROTHIAZIDE
     Dosage: 37.5-25 MG PER TABLET
     Dates: start: 20101213
  33. NEXIUM [Suspect]
     Active Substance: ESOMEPRAZOLE MAGNESIUM
     Indication: GASTROOESOPHAGEAL REFLUX DISEASE
     Route: 048
     Dates: start: 2011, end: 2014
  34. BUPROPION. [Concomitant]
     Active Substance: BUPROPION
     Indication: ANTIDEPRESSANT DRUG LEVEL
     Dosage: TAKE 1 TABLET BY MOUTH EVERY DAY.
     Route: 048
     Dates: start: 201110, end: 201604
  35. FLUTICASONE. [Concomitant]
     Active Substance: FLUTICASONE
     Route: 045
     Dates: start: 20120919
  36. TRIAMTERENE AND HYDROCHLOROTHIAZIDE [Concomitant]
     Active Substance: HYDROCHLOROTHIAZIDE\TRIAMTERENE
  37. TRIAMTERENE. [Concomitant]
     Active Substance: TRIAMTERENE
     Indication: BLOOD PRESSURE INCREASED
     Dates: start: 201106, end: 201603
  38. MORPHINE SULFATE. [Concomitant]
     Active Substance: MORPHINE SULFATE
     Dosage: 1-2 MG EVERY 30 MINUTES
     Route: 042
  39. TRAMADOL. [Concomitant]
     Active Substance: TRAMADOL
     Dosage: 50.0MG EVERY 8 - 12 HOURS
     Route: 048
  40. HYDROCHLOROTHIAZIDE. [Concomitant]
     Active Substance: HYDROCHLOROTHIAZIDE
     Route: 048
  41. ONDANSETRON [Concomitant]
     Active Substance: ONDANSETRON
     Dosage: 4.0MG UNKNOWN
     Dates: start: 20120324
  42. CIPROFLOXACIN. [Concomitant]
     Active Substance: CIPROFLOXACIN

REACTIONS (4)
  - Acute kidney injury [Recovered/Resolved]
  - Renal failure [Unknown]
  - Chronic kidney disease [Not Recovered/Not Resolved]
  - End stage renal disease [Unknown]

NARRATIVE: CASE EVENT DATE: 20111211
